FAERS Safety Report 25778935 (Version 1)
Quarter: 2025Q3

REPORT INFORMATION
  Report Type: Spontaneous
  Country: US (occurrence: None)
  Receive Date: 20250908
  Receipt Date: 20250908
  Transmission Date: 20251020
  Serious: Yes (Death)
  Sender: FDA-CTU
  Company Number: None

PATIENT
  Age: 75 Year
  Sex: Female

DRUGS (9)
  1. SKYRIZI [Suspect]
     Active Substance: RISANKIZUMAB-RZAA
     Indication: Psoriasis
     Route: 058
     Dates: start: 20250602
  2. Metoprolol ER 50mg tablets [Concomitant]
  3. Nifedipine ER 30mg tablets [Concomitant]
  4. Atorvastatin 80mg tablets [Concomitant]
  5. LISINOPRIL [Concomitant]
     Active Substance: LISINOPRIL
  6. CLOPIDOGREL [Concomitant]
     Active Substance: CLOPIDOGREL BISULFATE
  7. Folic acid 1 mg tablets [Concomitant]
  8. Varenicline 0.5mg tablets [Concomitant]
  9. Fluocinonide ointment 0.05^% [Concomitant]

REACTIONS (1)
  - Death [None]
